FAERS Safety Report 9777660 (Version 2)
Quarter: 2014Q1

REPORT INFORMATION
  Report Type: Spontaneous
  Country: JP (occurrence: JP)
  Receive Date: 20131223
  Receipt Date: 20140122
  Transmission Date: 20141002
  Serious: Yes (Life-Threatening)
  Sender: FDA-Public Use
  Company Number: JP-ROCHE-1321289

PATIENT
  Age: 74 Year
  Sex: Male
  Weight: 57 kg

DRUGS (16)
  1. XELODA [Suspect]
     Indication: COLON CANCER
     Dosage: DOSAGE IS UNCERTAIN.
     Route: 048
     Dates: start: 20130205, end: 20130219
  2. XELODA [Suspect]
     Dosage: DOSAGE IS UNCERTAIN.
     Route: 048
     Dates: start: 20130226, end: 20130312
  3. XELODA [Suspect]
     Dosage: DOSAGE IS UNCERTAIN.
     Route: 048
     Dates: start: 20130326, end: 20130409
  4. XELODA [Suspect]
     Dosage: DOSAGE IS UNCERTAIN.
     Route: 048
     Dates: start: 20130416, end: 20130430
  5. XELODA [Suspect]
     Dosage: DOSAGE IS UNCERTAIN.
     Route: 048
     Dates: start: 20130507, end: 20130521
  6. XELODA [Suspect]
     Dosage: DOSAGE IS UNCERTAIN.
     Route: 048
     Dates: start: 20130528, end: 20130611
  7. ELPLAT [Suspect]
     Indication: COLON CANCER
     Dosage: DOSAGE IS UNCERTAIN.
     Route: 041
     Dates: start: 20130205, end: 20130205
  8. ELPLAT [Suspect]
     Dosage: DOSAGE IS UNCERTAIN.
     Route: 041
     Dates: start: 20130226, end: 20130226
  9. ELPLAT [Suspect]
     Dosage: DOSAGE IS UNCERTAIN.
     Route: 041
     Dates: start: 20130326, end: 20130326
  10. ELPLAT [Suspect]
     Dosage: DOSAGE IS UNCERTAIN.
     Route: 041
     Dates: start: 20130416, end: 20130416
  11. ELPLAT [Suspect]
     Dosage: DOSAGE IS UNCERTAIN.
     Route: 041
     Dates: start: 20130507, end: 20130507
  12. ELPLAT [Suspect]
     Dosage: DOSAGE IS UNCERTAIN.
     Route: 041
     Dates: start: 20130528, end: 20130528
  13. CELECOX [Concomitant]
     Indication: VASCULAR PAIN
     Route: 048
     Dates: start: 20130205, end: 20130618
  14. DECADRON [Concomitant]
     Indication: PROPHYLAXIS OF NAUSEA AND VOMITING
     Route: 048
     Dates: start: 20130205, end: 20130528
  15. EMEND [Concomitant]
     Indication: PROPHYLAXIS OF NAUSEA AND VOMITING
     Route: 048
     Dates: start: 20130205, end: 20130528
  16. EMEND [Concomitant]
     Route: 048
     Dates: start: 20130206, end: 20130530

REACTIONS (1)
  - Interstitial lung disease [Recovering/Resolving]
